FAERS Safety Report 6300576-3 (Version None)
Quarter: 2009Q3

REPORT INFORMATION
  Report Type: 
  Country: None (occurrence: None)
  Receive Date: 20090806
  Receipt Date: 20090421
  Transmission Date: 20100115
  Serious: No
  Sender: FDA-Public Use
  Company Number: US-ABBOTT-09P-163-0569424-00

PATIENT
  Sex: Male
  Weight: 99.88 kg

DRUGS (4)
  1. DEPAKOTE ER [Suspect]
     Indication: ANXIETY
     Dates: start: 20020101
  2. DIVALPROEX DR GENERIC [Suspect]
     Indication: DRUG USE FOR UNKNOWN INDICATION
  3. DIVALPROEX EXTENDED-RELEASE [Suspect]
     Indication: DRUG USE FOR UNKNOWN INDICATION
  4. LAMICTAL [Concomitant]
     Indication: DEPRESSION
     Dosage: 200MG; 1/2 TABLET DAILY
     Route: 048

REACTIONS (2)
  - IRRITABILITY [None]
  - SOMNOLENCE [None]
